FAERS Safety Report 8890902 (Version 2)
Quarter: 2012Q4

REPORT INFORMATION
  Report Type: 
  Country: DE (occurrence: DE)
  Receive Date: 20121107
  Receipt Date: 20121206
  Transmission Date: 20130627
  Serious: Yes (Hospitalization, Other)
  Sender: FDA-Public Use
  Company Number: DE-ELI_LILLY_AND_COMPANY-DE201210009439

PATIENT
  Age: 65 Year
  Sex: Male

DRUGS (8)
  1. HUMALOG LISPRO [Suspect]
     Indication: TYPE 2 DIABETES MELLITUS
     Dosage: UNK, prn
     Route: 058
  2. METOPROLOL [Concomitant]
  3. SIMVASTATIN [Concomitant]
  4. ALLOPURINOL [Concomitant]
  5. FUROSEMID [Concomitant]
  6. FOSINOPRIL [Concomitant]
  7. XIPAMID [Concomitant]
  8. INSULIN [Concomitant]

REACTIONS (2)
  - Arterial occlusive disease [Not Recovered/Not Resolved]
  - Glycosylated haemoglobin increased [Unknown]
